FAERS Safety Report 8889451 (Version 1)
Quarter: 2012Q4

REPORT INFORMATION
  Report Type: Spontaneous
  Country: FR (occurrence: None)
  Receive Date: 20121031
  Receipt Date: 20121031
  Transmission Date: 20130627
  Serious: Yes (Hospitalization, Disabling)
  Sender: FDA-Public Use
  Company Number: KAD201210-000471

PATIENT
  Age: 43 Year
  Sex: Female

DRUGS (2)
  1. RIBAVIRIN [Suspect]
     Indication: CHRONIC HEPATITIS C
  2. PEGYLATED INTERFERON ALFA-2B [Suspect]
     Indication: CHRONIC HEPATITIS C

REACTIONS (3)
  - Vogt-Koyanagi-Harada syndrome [None]
  - Macular oedema [None]
  - Retinal detachment [None]
